FAERS Safety Report 23658113 (Version 1)
Quarter: 2024Q1

REPORT INFORMATION
  Report Type: Spontaneous
  Country: BE (occurrence: BE)
  Receive Date: 20240321
  Receipt Date: 20240321
  Transmission Date: 20240410
  Serious: Yes (Hospitalization)
  Sender: FDA-Public Use
  Company Number: BE-MYLANLABS-2024M1025688

PATIENT
  Age: 51 Year
  Sex: Male

DRUGS (6)
  1. OLANZAPINE [Suspect]
     Active Substance: OLANZAPINE
     Indication: Schizoaffective disorder
     Dosage: 10 MILLIGRAM, QD
     Route: 065
  2. CLOZAPINE [Suspect]
     Active Substance: CLOZAPINE
     Indication: Catatonia
     Dosage: UNK, LOW DOSE
     Route: 065
  3. HALOPERIDOL [Suspect]
     Active Substance: HALOPERIDOL
     Indication: Schizoaffective disorder
     Dosage: 10 MILLIGRAM, QD
     Route: 065
  4. LORMETAZEPAM [Concomitant]
     Active Substance: LORMETAZEPAM
     Indication: Schizoaffective disorder
     Dosage: UNK
     Route: 065
  5. TRAZODONE [Concomitant]
     Active Substance: TRAZODONE HYDROCHLORIDE
     Indication: Schizoaffective disorder
     Dosage: UNK
     Route: 065
  6. PROCYCLIDINE [Concomitant]
     Active Substance: PROCYCLIDINE
     Indication: Schizoaffective disorder
     Dosage: UNK
     Route: 065

REACTIONS (11)
  - Neuroleptic malignant syndrome [Recovering/Resolving]
  - Catatonia [Recovering/Resolving]
  - Condition aggravated [Recovering/Resolving]
  - Pneumonia aspiration [Unknown]
  - Gastrostomy [Unknown]
  - Decubitus ulcer [Unknown]
  - Neuromyopathy [Unknown]
  - Amyotrophy [Unknown]
  - Immobile [Unknown]
  - Paradoxical drug reaction [Recovering/Resolving]
  - Off label use [Unknown]
